FAERS Safety Report 8499548-2 (Version None)
Quarter: 2012Q3

REPORT INFORMATION
  Report Type: 
  Country: None (occurrence: None)
  Receive Date: 20120710
  Receipt Date: 20120703
  Transmission Date: 20120928
  Serious: Yes (Death, Other)
  Sender: FDA-Public Use
  Company Number: GB-JNJFOC-20120702198

PATIENT

DRUGS (13)
  1. CYCLOPHOSPHAMIDE [Suspect]
     Indication: ADULT T-CELL LYMPHOMA/LEUKAEMIA
     Dosage: ON DAY 1 OF 21 DAY CYCLE, (CYCLE 1-5)
     Route: 042
  2. PREDNISOLONE [Suspect]
     Indication: ADULT T-CELL LYMPHOMA/LEUKAEMIA
     Dosage: ON DAYS 1-5 OF 21 DAY CYCLE, (CYCLE 1-5)
     Route: 048
  3. COTRIM [Concomitant]
     Indication: ANTIFUNGAL PROPHYLAXIS
     Dosage: 960 MG ORALLY TWICE DAILY THREETIMES A WEEK OR 480 MG DAILY
     Route: 048
  4. CYTARABINE [Suspect]
     Indication: ADULT T-CELL LYMPHOMA/LEUKAEMIA
     Route: 037
  5. ITRACONAZOLE [Concomitant]
     Indication: PROPHYLAXIS
     Route: 065
  6. DOXORUBICIN HCL [Suspect]
     Indication: ADULT T-CELL LYMPHOMA/LEUKAEMIA
     Dosage: ON DAY 1 OF 21 DAY, (CYCLE 1-5)
     Route: 042
  7. THIABENDAZOLE [Concomitant]
     Indication: STRONGYLOIDIASIS
     Dosage: (MAXIMUM 1.5 G) FOR 3 DAYS
     Route: 065
  8. VINCRISTINE [Suspect]
     Indication: ADULT T-CELL LYMPHOMA/LEUKAEMIA
     Dosage: (MAXIMUM 2 MG) ON DAY 1 OF 21 DAY CYCLE, (CYCLE 1-5)
     Route: 042
  9. METHOTREXATE [Suspect]
     Indication: ADULT T-CELL LYMPHOMA/LEUKAEMIA
     Route: 037
  10. ZENAPAX [Suspect]
     Indication: ADULT T-CELL LYMPHOMA/LEUKAEMIA
     Dosage: ON DAYS 7 AND 14 ON CYCLE 1 OF 21 DAY CYCLE
     Route: 042
  11. HYDROCORTISONE [Suspect]
     Indication: ADULT T-CELL LYMPHOMA/LEUKAEMIA
     Route: 037
  12. RADIOTHERAPY [Suspect]
     Indication: ADULT T-CELL LYMPHOMA/LEUKAEMIA
     Route: 065
  13. ACYCLOVIR [Concomitant]
     Indication: PROPHYLAXIS
     Route: 065

REACTIONS (23)
  - DIZZINESS [None]
  - NAUSEA [None]
  - NEUTROPENIC SEPSIS [None]
  - MUCOSAL INFLAMMATION [None]
  - INFECTION [None]
  - HEPATOTOXICITY [None]
  - ADVERSE EVENT [None]
  - TACHYCARDIA [None]
  - FATIGUE [None]
  - GASTROINTESTINAL TOXICITY [None]
  - NEUROPATHY PERIPHERAL [None]
  - OEDEMA [None]
  - NEPHROPATHY TOXIC [None]
  - LUNG DISORDER [None]
  - PYREXIA [None]
  - ABDOMINAL PAIN [None]
  - INFUSION RELATED REACTION [None]
  - HALLUCINATION [None]
  - ADULT T-CELL LYMPHOMA/LEUKAEMIA [None]
  - CONDITION AGGRAVATED [None]
  - SKIN TOXICITY [None]
  - HYPOTENSION [None]
  - VOMITING [None]
